FAERS Safety Report 5775579-8 (Version None)
Quarter: 2008Q2

REPORT INFORMATION
  Report Type: 
  Country: None (occurrence: None)
  Receive Date: 20080617
  Receipt Date: 20080609
  Transmission Date: 20081010
  Serious: Yes (Other)
  Sender: FDA-Public Use
  Company Number: FR-PFIZER INC-2008048635

PATIENT
  Age: 40 Year
  Sex: Female

DRUGS (9)
  1. NELFINAVIR MESILATE [Suspect]
     Indication: HIV INFECTION
  2. COMBIVIR [Suspect]
     Indication: HIV INFECTION
  3. VALACYCLOVIR [Suspect]
     Dates: start: 20060915, end: 20061019
  4. AMOXICILLIN [Concomitant]
  5. AMYLASE [Concomitant]
  6. ACETAMINOPHEN [Concomitant]
  7. DIOSMECTITE [Concomitant]
  8. LOCABIOTAL [Concomitant]
  9. IRON [Concomitant]

REACTIONS (1)
  - POLYHYDRAMNIOS [None]
